FAERS Safety Report 6399033-8 (Version None)
Quarter: 2009Q4

REPORT INFORMATION
  Report Type: 
  Country: None (occurrence: None)
  Receive Date: 20091008
  Receipt Date: 20091008
  Transmission Date: 20100525
  Serious: Yes (Hospitalization)
  Sender: FDA-Public Use
  Company Number: None

PATIENT
  Age: 14 Year
  Sex: Male
  Weight: 56.6996 kg

DRUGS (1)
  1. TAMIFLU [Suspect]
     Indication: VIRAL INFECTION
     Dosage: 75MG TWICE DAILY PO
     Route: 048
     Dates: start: 20091006, end: 20091011

REACTIONS (4)
  - ABNORMAL BEHAVIOUR [None]
  - CONFUSIONAL STATE [None]
  - HALLUCINATION [None]
  - MENTAL STATUS CHANGES [None]
